FAERS Safety Report 8765782 (Version 1)
Quarter: 2012Q4

REPORT INFORMATION
  Report Type: 
  Country: US (occurrence: US)
  Receive Date: 20120903
  Receipt Date: 20120903
  Transmission Date: 20130627
  Serious: No
  Sender: FDA-Public Use
  Company Number: US-PFIZER INC-2012214787

PATIENT
  Age: 42 Year
  Sex: Female
  Weight: 61.22 kg

DRUGS (7)
  1. LYRICA [Suspect]
     Indication: PAIN IN EXTREMITY
     Dosage: 150 mg, two to three times a day
  2. LYRICA [Suspect]
     Indication: SCIATICA
  3. LYRICA [Suspect]
     Indication: FIBROMYALGIA
  4. LYRICA [Suspect]
     Indication: RHEUMATOID ARTHRITIS
  5. LYRICA [Suspect]
     Indication: MULTIPLE SCLEROSIS
  6. OXYCODONE HYDROCHLORIDE [Suspect]
     Indication: PAIN
     Dosage: UNK, six to nine times a day
  7. SOMA [Suspect]
     Indication: MUSCLE RELAXANT THERAPY
     Dosage: UNK, two to three times a day

REACTIONS (1)
  - Therapeutic response unexpected [Unknown]
